FAERS Safety Report 7701567-8 (Version None)
Quarter: 2011Q3

REPORT INFORMATION
  Report Type: 
  Country: None (occurrence: None)
  Receive Date: 20110822
  Receipt Date: 20110816
  Transmission Date: 20111222
  Serious: Yes (Life-Threatening, Hospitalization)
  Sender: FDA-Public Use
  Company Number: NL-ASTRAZENECA-2011SE49434

PATIENT
  Age: 17078 Day
  Sex: Female
  Weight: 65 kg

DRUGS (3)
  1. SEROQUEL XR [Suspect]
     Indication: BIPOLAR DISORDER
     Route: 048
     Dates: start: 20100101
  2. VENLAFAXINE [Concomitant]
     Route: 048
  3. LORAZEPAM [Concomitant]
     Route: 048

REACTIONS (4)
  - INTERSTITIAL LUNG DISEASE [None]
  - EPILEPSY [None]
  - INTENTIONAL OVERDOSE [None]
  - RESPIRATORY FAILURE [None]
